FAERS Safety Report 4638629-8 (Version None)
Quarter: 2005Q2

REPORT INFORMATION
  Report Type: 
  Country: None (occurrence: None)
  Receive Date: 20050414
  Receipt Date: 20050414
  Transmission Date: 20051028
  Serious: No
  Sender: FDA-Public Use
  Company Number: None

PATIENT
  Age: 51 Year
  Sex: Male
  Weight: 110.6777 kg

DRUGS (8)
  1. FLUOROURACIL [Suspect]
     Indication: COLON CANCER
     Dosage: 950 MG IV OVER  Q 2 WEEKS  2 HOURS
     Route: 042
     Dates: start: 20050328
  2. FLUOROURACIL [Suspect]
     Indication: COLON CANCER
     Dosage: 5700 MG IV OVER Q 2 WEEKS  OVER 48 HOURS
     Route: 042
     Dates: start: 20050328, end: 20050330
  3. LEUCOVORIN CALCIUM [Suspect]
     Indication: COLON CANCER
     Dosage: 950 MG IV Q 2 WEEKS
     Route: 042
     Dates: start: 20050328
  4. OXALIPLATIN [Suspect]
     Indication: COLON CANCER
     Dosage: 200 MG IV Q 2 WEEKS
     Route: 042
     Dates: start: 20050328
  5. AVASTIN [Suspect]
     Indication: COLON CANCER
     Dosage: 550 MG IV Q 2 WEEKS
     Route: 042
     Dates: start: 20050328
  6. .... [Concomitant]
  7. .... [Concomitant]
  8. ..... [Concomitant]

REACTIONS (1)
  - DEEP VEIN THROMBOSIS [None]
